FAERS Safety Report 6836295-4 (Version None)
Quarter: 2010Q3

REPORT INFORMATION
  Report Type: 
  Country: None (occurrence: None)
  Receive Date: 20100712
  Receipt Date: 20100712
  Transmission Date: 20110219
  Serious: Yes (Other)
  Sender: FDA-Public Use
  Company Number: None

PATIENT
  Age: 26 Year
  Sex: Female
  Weight: 74.8435 kg

DRUGS (1)
  1. GIANVI 3 MG/0.02 MG TEVA PHARMACEUTICALS US [Suspect]
     Indication: CONTRACEPTION
     Dosage: 1 PILL 1 TIME A DAY PO
     Route: 048
     Dates: start: 20100625, end: 20100707

REACTIONS (4)
  - HYPERSOMNIA [None]
  - MENORRHAGIA [None]
  - MUSCLE SPASMS [None]
  - PRODUCT SUBSTITUTION ISSUE [None]
